FAERS Safety Report 8760242 (Version 3)
Quarter: 2013Q1

REPORT INFORMATION
  Report Type: Spontaneous
  Country: FR (occurrence: None)
  Receive Date: 20120817
  Receipt Date: 20130122
  Transmission Date: 20140127
  Serious: Yes (Death, Other)
  Sender: FDA-Public Use
  Company Number: AXC-2012-000359

PATIENT
  Age: 66 Year
  Sex: Male

DRUGS (19)
  1. URSOLVAN [Suspect]
     Indication: CHOLESTASIS
     Route: 048
     Dates: end: 20120511
  2. SANDIMMUN (CICLOSPORIN) INFUSION [Suspect]
     Indication: PROPHYLAXIS
     Dosage: VARIABLE
     Route: 042
     Dates: start: 20120123, end: 20120404
  3. VFEND (VORICONAZOLE) INFUSION [Suspect]
     Indication: PROPHYLAXIS
     Route: 042
     Dates: end: 20120511
  4. HEPARIN CALCIUM (HEPARIN CALCIUM) INFUSION [Suspect]
     Indication: PROPHYLAXIS
     Route: 042
     Dates: end: 20120321
  5. PLITICAN (ALIZAPRIDE HYDROCHLORIDE) INFUSION [Suspect]
     Indication: PROPHYLAXIS
     Dosage: VARIABLE UNK, UNK, INTRAVENOUS
     Route: 042
     Dates: start: 20120314, end: 20120319
  6. HUMAN SERUM ALBUMIN (ALBUMIN HUMAN) INFUSION [Suspect]
     Indication: PRODUCT USED FOR UNKNOWN INDICATION
     Route: 042
     Dates: end: 20120306
  7. SOLUMEDROL(METHYLPREDNISOLONE SODIUM SUCCINATE) INFUSION [Suspect]
     Indication: IMMUNOSUPPRESSION
     Dosage: VARIABLE UNK, UNK, INTRAVENOUS
     Route: 042
     Dates: end: 20120511
  8. LEVOTHYROX (LEVOTHYROXINE SODIUM) INFUSION [Suspect]
     Indication: HYPOTHYROIDISM
     Route: 042
     Dates: end: 20120511
  9. STILNOX(ZOLPIDEM TARTRATE) FILM-COATED TABLET, 10MG [Suspect]
     Indication: INSOMNIA
     Route: 048
     Dates: end: 20120318
  10. LOXEN (NICARDIPINE HYDROCHLORIDE) SLOW RELEASE [Suspect]
     Indication: HYPERTENSION
     Route: 048
     Dates: end: 20120415
  11. MOPRAL /00881201/ (OMEPRAZOLE) INFUSION [Suspect]
     Indication: PROPHYLAXIS
     Dosage: VARIABLE UNK, UNK, INTRAVENOUS
     Route: 042
     Dates: end: 20120511
  12. ORACILLINE? /00001801/( PHENOXYMETHYLPENICILLIN) UNKNOWN [Suspect]
     Indication: PROPHYLAXIS
     Route: 048
     Dates: end: 20120322
  13. BACTRIN (SULFAMETHOXAZOLE, TRIMETHOPRIM) TABLET [Suspect]
     Indication: PROPHYLAXIS
     Route: 048
     Dates: end: 20120405
  14. TIORFAN (ACETORPHAN) UNKNOWN [Suspect]
     Indication: ANTIDIARRHOEAL SUPPORTIVE CARE
     Route: 048
     Dates: end: 20120425
  15. SPECIAFOLDINE (FOLIC ACID) UNKNOWN [Suspect]
     Indication: VITAMIN B12 DEFICIENCY
     Dates: end: 20120405
  16. ROVALCYTE (VALGANCICLOVIR HYDROCHLORIDE) UNKNOWN [Suspect]
     Indication: PROPHYLAXIS
     Route: 048
     Dates: start: 20120310, end: 20120316
  17. EFFEXOR (VENLAFAXINE HYDROCHLORIDE) UNKNOWN [Suspect]
     Indication: PRODUCT USED FOR UNKNOWN INDICATION
     Dosage: VARIABLE UNK, QD, ORAL
     Route: 048
     Dates: start: 20120313, end: 20120322
  18. TRANXENE (CLORAZEPATE DIFOTASSIUM) UNKNOWN [Suspect]
     Indication: ANXIETY
     Dosage: VARIABLE UNK,QD, ORAL
     Route: 048
     Dates: start: 20120313, end: 20120316
  19. CYMEVAN (GANCICLOVIR SODIUM) UNKNOWN [Suspect]
     Indication: PRODUCT USED FOR UNKNOWN INDICATION
     Dates: end: 20120506

REACTIONS (12)
  - Thrombotic microangiopathy [None]
  - Thrombotic thrombocytopenic purpura [None]
  - Multi-organ failure [None]
  - Haemolysis [None]
  - Renal failure [None]
  - Kussmaul respiration [None]
  - Confusional state [None]
  - Haematotoxicity [None]
  - Human herpesvirus 6 infection [None]
  - Cytomegalovirus infection [None]
  - Epstein-Barr virus test positive [None]
  - Neurological decompensation [None]
